FAERS Safety Report 21200215 (Version 1)
Quarter: 2022Q3

REPORT INFORMATION
  Report Type: Spontaneous
  Country: US (occurrence: None)
  Receive Date: 20220811
  Receipt Date: 20220811
  Transmission Date: 20221026
  Serious: No
  Sender: FDA-Public Use
  Company Number: 2022A253616

PATIENT
  Sex: Female

DRUGS (1)
  1. FASENRA [Suspect]
     Active Substance: BENRALIZUMAB
     Indication: Asthma
     Route: 058
     Dates: start: 202202

REACTIONS (22)
  - Sinus congestion [Unknown]
  - Skin haemorrhage [Unknown]
  - Arthralgia [Unknown]
  - Myalgia [Unknown]
  - Vertigo [Unknown]
  - Balance disorder [Unknown]
  - Nausea [Unknown]
  - Urticaria [Unknown]
  - Respiratory tract congestion [Unknown]
  - Lacrimation increased [Unknown]
  - Eye discharge [Unknown]
  - Eye pruritus [Unknown]
  - Eyelids pruritus [Unknown]
  - Sinusitis [Unknown]
  - Skin weeping [Unknown]
  - Multiple allergies [Unknown]
  - Nasal congestion [Unknown]
  - Rhinorrhoea [Unknown]
  - Therapeutic product effect incomplete [Unknown]
  - Symptom recurrence [Unknown]
  - Dizziness [Unknown]
  - Fatigue [Unknown]
